FAERS Safety Report 11298777 (Version 1)
Quarter: 2015Q3

REPORT INFORMATION
  Report Type: Spontaneous
  Country: US (occurrence: US)
  Receive Date: 20150722
  Receipt Date: 20150722
  Transmission Date: 20151125
  Serious: No
  Sender: FDA-Public Use
  Company Number: US-ELI_LILLY_AND_COMPANY-US201204001773

PATIENT
  Sex: Female

DRUGS (6)
  1. ISOSORBIDE. [Concomitant]
     Active Substance: ISOSORBIDE
  2. TOPROL XL [Concomitant]
     Active Substance: METOPROLOL SUCCINATE
  3. NITROSTAT [Concomitant]
     Active Substance: NITROGLYCERIN
  4. EFFIENT [Suspect]
     Active Substance: PRASUGREL HYDROCHLORIDE
     Indication: STENT PLACEMENT
     Dosage: 10 MG
     Dates: start: 20120327
  5. BABY ASPIRIN [Concomitant]
     Active Substance: ASPIRIN
  6. METOPROLOL [Concomitant]
     Active Substance: METOPROLOL

REACTIONS (4)
  - Haemorrhage [Unknown]
  - Faeces discoloured [Recovered/Resolved]
  - Laceration [Unknown]
  - Rash [Unknown]
